FAERS Safety Report 7830922 (Version 7)
Quarter: 2013Q2

REPORT INFORMATION
  Report Type: Spontaneous
  Country: DE (occurrence: DE)
  Receive Date: 20110228
  Receipt Date: 20130503
  Transmission Date: 20140414
  Serious: Yes (Life-Threatening, Hospitalization, Disabling)
  Sender: FDA-Public Use
  Company Number: DE-BIOGENIDEC-2011BI005661

PATIENT
  Age: 42 Year
  Sex: Male

DRUGS (5)
  1. TYSABRI [Suspect]
     Indication: RELAPSING-REMITTING MULTIPLE SCLEROSIS
     Route: 042
     Dates: start: 200705, end: 20110116
  2. ASS [Concomitant]
     Indication: PROPHYLAXIS
     Dates: start: 2011
  3. PANTOPRAZOL [Concomitant]
     Indication: PROPHYLAXIS
     Dates: start: 2011
  4. CARBAMAZEPIN [Concomitant]
     Indication: TRIGEMINAL NEURALGIA
     Dates: start: 2009
  5. TOPIRAMAT [Concomitant]
     Indication: TRIGEMINAL NEURALGIA
     Dates: start: 2008

REACTIONS (2)
  - Progressive multifocal leukoencephalopathy [Recovered/Resolved with Sequelae]
  - Immune reconstitution inflammatory syndrome [Recovered/Resolved with Sequelae]
